FAERS Safety Report 5881092-X (Version None)
Quarter: 2008Q3

REPORT INFORMATION
  Report Type: 
  Country: None (occurrence: None)
  Receive Date: 20080912
  Receipt Date: 20080619
  Transmission Date: 20090109
  Serious: No
  Sender: FDA-Public Use
  Company Number: US-ABBOTT-08P-163-0458525-00

PATIENT
  Sex: Female
  Weight: 79.45 kg

DRUGS (2)
  1. HUMIRA [Suspect]
     Indication: CROHN'S DISEASE
     Route: 058
     Dates: start: 20070901, end: 20080601
  2. HUMIRA [Suspect]
     Route: 058
     Dates: start: 20080618

REACTIONS (2)
  - DRUG DOSE OMISSION [None]
  - SENSATION OF HEAVINESS [None]
